FAERS Safety Report 9985085 (Version 1)
Quarter: 2014Q1

REPORT INFORMATION
  Report Type: Report from Study
  Country: US (occurrence: US)
  Receive Date: 20140307
  Receipt Date: 20140307
  Transmission Date: 20141002
  Serious: No
  Sender: FDA-Public Use
  Company Number: US-ABBVIE-14P-163-1186548-00

PATIENT
  Age: 72 Year
  Sex: Female

DRUGS (15)
  1. HUMIRA [Suspect]
     Indication: COLITIS ULCERATIVE
     Route: 058
     Dates: start: 20130918
  2. SYNTHROID [Concomitant]
     Indication: HYPOTHYROIDISM
  3. PLAQUENIL [Concomitant]
     Indication: COLITIS ULCERATIVE
  4. HCTZ [Concomitant]
     Indication: HYPERTENSION
  5. VITAMIN B6 [Concomitant]
     Indication: PRODUCT USED FOR UNKNOWN INDICATION
  6. VITAMIN D [Concomitant]
     Indication: PRODUCT USED FOR UNKNOWN INDICATION
  7. CALTRATE [Concomitant]
     Indication: PRODUCT USED FOR UNKNOWN INDICATION
  8. KLOR CON [Concomitant]
     Indication: PRODUCT USED FOR UNKNOWN INDICATION
  9. LIALDA [Concomitant]
     Indication: COLITIS ULCERATIVE
     Dosage: 2 EVERY AM
  10. LORAZEPAM [Concomitant]
     Indication: INSOMNIA
     Dosage: EVERY HOUR OF SLEEP
  11. TRAMADOL [Concomitant]
     Indication: PAIN
     Dosage: 2 AS NEEDED
  12. LOMOTIL [Concomitant]
     Indication: DIARRHOEA
     Dosage: AS NEEDED
  13. FLUNISOLIDE [Concomitant]
     Indication: PRODUCT USED FOR UNKNOWN INDICATION
     Dosage: AS NEEDED
  14. HYDROXYZINE [Concomitant]
     Indication: PRODUCT USED FOR UNKNOWN INDICATION
     Dosage: AS NEEDED
  15. DESOXIMETASONE [Concomitant]
     Indication: RASH
     Dosage: AS NEEDED

REACTIONS (1)
  - Drug dose omission [Not Recovered/Not Resolved]
